FAERS Safety Report 17227544 (Version 1)
Quarter: 2020Q1

REPORT INFORMATION
  Report Type: Spontaneous
  Country: GB (occurrence: GB)
  Receive Date: 20200103
  Receipt Date: 20200103
  Transmission Date: 20200409
  Serious: Yes (Other)
  Sender: FDA-Public Use
  Company Number: GB-TEVA-2019-GB-1160335

PATIENT
  Age: 66 Year
  Sex: Female
  Weight: 115 kg

DRUGS (2)
  1. AMOXICILLIN. [Suspect]
     Active Substance: AMOXICILLIN
     Dosage: 500 MG
     Route: 065
  2. OTOMIZE [Concomitant]
     Active Substance: DEXAMETHASONE\NEOMYCIN SULFATE
     Dosage: USE THREE TIMES A DAY TO AFFECTED EAR
     Dates: start: 20191125

REACTIONS (3)
  - Rash [Unknown]
  - Mouth swelling [Unknown]
  - Respiratory tract oedema [Unknown]
